FAERS Safety Report 4740415-5 (Version None)
Quarter: 2005Q3

REPORT INFORMATION
  Report Type: 
  Country: None (occurrence: None)
  Receive Date: 20050805
  Receipt Date: 20050729
  Transmission Date: 20060218
  Serious: Yes (Death)
  Sender: FDA-Public Use
  Company Number: DEU-2005-0001602

PATIENT
  Age: 90 Year
  Sex: Female
  Weight: 43 kg

DRUGS (3)
  1. OXYGESIC 5MG (OXYCODONE HYDROCHLORIDE) CR TABLET [Suspect]
     Indication: PAIN
     Dosage: 5 MG, BID, ORAL
     Route: 048
     Dates: start: 20050316
  2. DIPYRONE TAB [Concomitant]
  3. LACTULOSE [Concomitant]

REACTIONS (1)
  - DEATH [None]
